FAERS Safety Report 9048676 (Version 1)
Quarter: 2013Q1

REPORT INFORMATION
  Report Type: Spontaneous
  Country: US (occurrence: None)
  Receive Date: 20130130
  Receipt Date: 20130130
  Transmission Date: 20140127
  Serious: No
  Sender: FDA-Public Use
  Company Number: None

PATIENT
  Age: 24 Year
  Sex: Female
  Weight: 54.4 kg

DRUGS (1)
  1. TRILEPTAL 300MG [Suspect]
     Dosage: QAM
     Route: 048
     Dates: start: 20121231, end: 20121231

REACTIONS (1)
  - Swollen tongue [None]
